FAERS Safety Report 6210002-0 (Version None)
Quarter: 2009Q2

REPORT INFORMATION
  Report Type: 
  Country: None (occurrence: None)
  Receive Date: 20090601
  Receipt Date: 20090528
  Transmission Date: 20091009
  Serious: No
  Sender: FDA-Public Use
  Company Number: US-B.I. PHARMACEUTICALS,INC./RIDGEFIELD-2009-BP-05048BP

PATIENT
  Sex: Female

DRUGS (4)
  1. MIRAPEX [Suspect]
     Indication: RESTLESS LEGS SYNDROME
     Dosage: 1MG
  2. VERAPAMIL [Concomitant]
     Dosage: 360MG
  3. HYDROCHLOROTHIAZIDE [Concomitant]
     Dosage: 25MG
  4. LEVOTHYROXINE [Concomitant]
     Dosage: 50MG

REACTIONS (1)
  - RESTLESS LEGS SYNDROME [None]
